FAERS Safety Report 5597594-X (Version None)
Quarter: 2008Q1

REPORT INFORMATION
  Report Type: 
  Country: None (occurrence: None)
  Receive Date: 20080121
  Receipt Date: 20080110
  Transmission Date: 20080703
  Serious: Yes (Hospitalization)
  Sender: FDA-Public Use
  Company Number: B0503739A

PATIENT
  Age: 48 Year
  Sex: Male

DRUGS (9)
  1. ALKERAN [Suspect]
     Dosage: 324MG SINGLE DOSE
     Route: 042
  2. CERNEVIT-12 [Suspect]
     Indication: PARENTERAL NUTRITION
     Dosage: 1INJ PER DAY
     Route: 042
  3. TPN [Suspect]
     Indication: PARENTERAL NUTRITION
     Dosage: 1INJ PER DAY
     Route: 042
  4. ZOVIRAX [Concomitant]
  5. ZOPHREN [Concomitant]
  6. BACTRIM [Concomitant]
  7. LEXOMIL [Concomitant]
  8. MOPRAL [Concomitant]
  9. SPASFON [Concomitant]

REACTIONS (6)
  - ECZEMA [None]
  - PRURIGO [None]
  - PURPURA [None]
  - RASH GENERALISED [None]
  - RASH MACULO-PAPULAR [None]
  - SKIN OEDEMA [None]
